FAERS Safety Report 5126279-9 (Version None)
Quarter: 2006Q4

REPORT INFORMATION
  Report Type: 
  Country: None (occurrence: None)
  Receive Date: 20061012
  Receipt Date: 20060807
  Transmission Date: 20070319
  Serious: Yes (Hospitalization)
  Sender: FDA-Public Use
  Company Number: FR-ABBOTT-06P-056-0339649-00

PATIENT
  Sex: Male

DRUGS (11)
  1. RITONAVIR SOFT GELATIN CAPSULES [Suspect]
     Indication: HIV INFECTION
     Route: 048
     Dates: start: 20060428, end: 20060719
  2. TMC125 [Concomitant]
     Indication: HIV INFECTION
     Route: 048
     Dates: start: 20060428, end: 20060719
  3. TMC125 [Concomitant]
     Route: 048
     Dates: start: 20060802
  4. TMC114 [Concomitant]
     Indication: HIV INFECTION
     Route: 048
     Dates: start: 20060428, end: 20060719
  5. TMC114 [Concomitant]
     Route: 048
     Dates: start: 20060802
  6. VIREAD [Concomitant]
     Indication: HIV INFECTION
     Route: 048
     Dates: start: 20040219
  7. FUZEON [Concomitant]
     Indication: HIV INFECTION
     Route: 048
     Dates: start: 20040219
  8. LEVOTHYROXINE SODIUM [Concomitant]
     Indication: HYPOTHYROIDISM
     Route: 048
  9. BACTRIM [Concomitant]
     Indication: ANTIBIOTIC PROPHYLAXIS
     Route: 048
  10. AMOROLFINE [Concomitant]
     Indication: DRUG USE FOR UNKNOWN INDICATION
     Route: 061
     Dates: start: 20060529
  11. AERIUS [Concomitant]
     Indication: DRUG USE FOR UNKNOWN INDICATION
     Route: 054
     Dates: start: 20060529

REACTIONS (6)
  - C-REACTIVE PROTEIN INCREASED [None]
  - CEREBRAL ATROPHY [None]
  - LOSS OF CONSCIOUSNESS [None]
  - MENINGEAL DISORDER [None]
  - SUBDURAL HAEMATOMA [None]
  - TRAUMATIC BRAIN INJURY [None]
